FAERS Safety Report 11001694 (Version 1)
Quarter: 2015Q2

REPORT INFORMATION
  Report Type: Report from Study
  Country: RU (occurrence: RU)
  Receive Date: 20150408
  Receipt Date: 20150408
  Transmission Date: 20150821
  Serious: Yes (Hospitalization)
  Sender: FDA-Public Use
  Company Number: CHPA2015RU004686

PATIENT
  Age: 30 Year
  Sex: Male

DRUGS (1)
  1. THERAFLU ACETAM/PHENIR/PHENEPH [Suspect]
     Active Substance: ACETAMINOPHEN\PHENIRAMINE MALEATE\PHENYLEPHRINE HYDROCHLORIDE
     Indication: NASOPHARYNGITIS
     Dosage: UNK, ONCE/SINGLE
     Route: 048
     Dates: start: 2010, end: 2010

REACTIONS (1)
  - Angioedema [Recovered/Resolved]
